FAERS Safety Report 14550166 (Version 2)
Quarter: 2018Q2

REPORT INFORMATION
  Report Type: Report from Study
  Country: US (occurrence: US)
  Receive Date: 20180219
  Receipt Date: 20180524
  Transmission Date: 20180711
  Serious: No
  Sender: FDA-Public Use
  Company Number: US-ACADIA PHARMACEUTICALS INC.-ACA-2017-006508

PATIENT
  Sex: Male

DRUGS (5)
  1. XANAX [Concomitant]
     Active Substance: ALPRAZOLAM
     Indication: TREMOR
     Dosage: 0.5 MG, PRN
     Route: 065
  2. XANAX [Concomitant]
     Active Substance: ALPRAZOLAM
     Dosage: 0.5 UNK, UNK
     Route: 065
  3. NUPLAZID [Suspect]
     Active Substance: PIMAVANSERIN TARTRATE
     Indication: DELUSION
  4. NUPLAZID [Suspect]
     Active Substance: PIMAVANSERIN TARTRATE
     Indication: PARKINSON^S DISEASE PSYCHOSIS
  5. NUPLAZID [Suspect]
     Active Substance: PIMAVANSERIN TARTRATE
     Indication: HALLUCINATION
     Dosage: 34 MG, QD
     Route: 065
     Dates: start: 20171122

REACTIONS (4)
  - Tremor [Unknown]
  - Feeling abnormal [Unknown]
  - Memory impairment [Unknown]
  - Amnesia [Unknown]
